FAERS Safety Report 17752625 (Version 1)
Quarter: 2020Q2

REPORT INFORMATION
  Report Type: Spontaneous
  Country: AT (occurrence: AT)
  Receive Date: 20200506
  Receipt Date: 20200506
  Transmission Date: 20200714
  Serious: Yes (Hospitalization)
  Sender: FDA-Public Use
  Company Number: AT-CELGENEUS-AUT-20180701100

PATIENT
  Age: 79 Year
  Sex: Female
  Weight: 54.7 kg

DRUGS (32)
  1. VENETOCLAX. [Concomitant]
     Active Substance: VENETOCLAX
     Dosage: 400 MILLIGRAM
     Route: 048
     Dates: start: 20171018, end: 20180706
  2. ONDANSAN [Concomitant]
     Indication: PROPHYLAXIS
     Dosage: 8 MILLIGRAM
     Route: 048
     Dates: start: 20171016, end: 20171018
  3. VITAMINS WITH MINERALS [Concomitant]
     Active Substance: MINERALS\VITAMINS
     Dosage: 1200 MILLIGRAM
     Route: 048
     Dates: start: 20180425
  4. AZACITIDINE. [Suspect]
     Active Substance: AZACITIDINE
     Indication: ACUTE MYELOID LEUKAEMIA
     Dosage: 75 MILLIGRAM/SQ. METER
     Route: 058
     Dates: start: 20171016
  5. IVEMEND [Concomitant]
     Active Substance: FOSAPREPITANT DIMEGLUMINE
     Indication: VOMITING
     Route: 041
     Dates: start: 20180629
  6. VALACICLOVIR ARCANA [Concomitant]
     Indication: INFECTION PROPHYLAXIS
     Dosage: 1000 MILLIGRAM
     Route: 048
     Dates: start: 20180626
  7. VALACICLOVIR ARCANA [Concomitant]
     Dosage: 1000 MILLIGRAM
     Route: 048
     Dates: start: 20180720
  8. IVEMEND [Concomitant]
     Active Substance: FOSAPREPITANT DIMEGLUMINE
     Indication: NAUSEA
     Dosage: 150 MILLIGRAM
     Route: 041
     Dates: start: 20171211, end: 20171213
  9. PASPERTIN [Concomitant]
     Route: 041
     Dates: start: 20180117
  10. ZARZIO [Concomitant]
     Active Substance: FILGRASTIM
     Indication: FEBRILE NEUTROPENIA
     Dosage: 30 IU (INTERNATIONAL UNIT)
     Route: 058
     Dates: start: 20180228, end: 20180308
  11. CEPHABENE [Concomitant]
     Indication: LOCALISED INFECTION
     Dosage: 1000 MILLIGRAM
     Route: 048
     Dates: start: 20180621, end: 20180625
  12. IVEMEND [Concomitant]
     Active Substance: FOSAPREPITANT DIMEGLUMINE
     Indication: PROPHYLAXIS OF NAUSEA AND VOMITING
     Route: 041
     Dates: start: 20171113, end: 20171116
  13. LOVENOX [Concomitant]
     Active Substance: ENOXAPARIN SODIUM
     Indication: THROMBOSIS PROPHYLAXIS
     Route: 058
     Dates: start: 20180626
  14. VENETOCLAX. [Concomitant]
     Active Substance: VENETOCLAX
     Dosage: 200 MILLIGRAM
     Route: 048
     Dates: start: 20171017, end: 20171017
  15. BONVIVA [Concomitant]
     Active Substance: IBANDRONATE SODIUM
     Indication: OSTEOPOROSIS
     Dosage: 3 MILLIGRAM
     Route: 058
     Dates: start: 20171010
  16. OLEOVIT [Concomitant]
     Indication: PROPHYLAXIS
     Dosage: 30 DROPS
     Route: 048
     Dates: start: 20171015
  17. ONDANSAN [Concomitant]
     Route: 048
     Dates: start: 20180602
  18. ZARZIO [Concomitant]
     Active Substance: FILGRASTIM
     Indication: NEUTROPENIA
     Dosage: .5 MILLILITER
     Route: 058
     Dates: start: 20171211, end: 20171212
  19. PANTOLOC [Concomitant]
     Active Substance: PANTOPRAZOLE SODIUM
     Indication: GASTRITIS PROPHYLAXIS
     Dosage: 40 MILLIGRAM
     Route: 048
     Dates: start: 20171211
  20. GLANDOMED [Concomitant]
     Indication: INFECTION PROPHYLAXIS
     Dosage: 1 TABLESPOON
     Route: 048
     Dates: start: 20171211
  21. PASPERTIN [Concomitant]
     Indication: PROPHYLAXIS OF NAUSEA AND VOMITING
     Route: 048
     Dates: start: 20171019, end: 20171023
  22. ZARZIO [Concomitant]
     Active Substance: FILGRASTIM
     Route: 058
     Dates: start: 20180601
  23. CONCOR [Concomitant]
     Active Substance: BISOPROLOL FUMARATE
     Indication: TACHYCARDIA
     Dosage: 1.25 MILLIGRAM
     Route: 048
     Dates: start: 20180331
  24. VITAMINS WITH MINERALS [Concomitant]
     Active Substance: MINERALS\VITAMINS
     Indication: OSTEOPOROSIS
     Dosage: 600 MILLIGRAM
     Route: 048
     Dates: start: 20180328, end: 20180424
  25. LOVENOX [Concomitant]
     Active Substance: ENOXAPARIN SODIUM
     Dosage: 4000 IU (INTERNATIONAL UNIT)
     Route: 058
     Dates: start: 20180321, end: 20180509
  26. ALLOPURINOL. [Concomitant]
     Active Substance: ALLOPURINOL
     Indication: PROPHYLAXIS
     Route: 065
     Dates: start: 20171014, end: 20171115
  27. VENETOCLAX. [Concomitant]
     Active Substance: VENETOCLAX
     Indication: ACUTE MYELOID LEUKAEMIA
     Dosage: 100 MILLIGRAM
     Route: 048
     Dates: start: 20171016, end: 20171016
  28. PASPERTIN [Concomitant]
     Route: 048
     Dates: start: 20171215
  29. ZARZIO [Concomitant]
     Active Substance: FILGRASTIM
     Indication: PROPHYLAXIS
     Dosage: 30 IU (INTERNATIONAL UNIT)
     Route: 058
     Dates: start: 20180119, end: 20180123
  30. PASPERTIN [Concomitant]
     Dosage: 10 MILLIGRAM
     Route: 048
     Dates: start: 20171113, end: 20171119
  31. ONDANSAN [Concomitant]
     Route: 048
     Dates: start: 20180508
  32. VALACICLOVIR ARCANA [Concomitant]
     Indication: ORAL HERPES
     Dosage: 1000 MILLIGRAM
     Route: 048
     Dates: start: 201806, end: 20180624

REACTIONS (4)
  - Constipation [Recovered/Resolved]
  - Neutropenia [Recovered/Resolved]
  - Stoma site infection [Recovered/Resolved]
  - Escherichia infection [Recovered/Resolved]

NARRATIVE: CASE EVENT DATE: 20180625
